FAERS Safety Report 18511380 (Version 1)
Quarter: 2020Q4

REPORT INFORMATION
  Report Type: Other
  Country: CA (occurrence: CA)
  Receive Date: 20201117
  Receipt Date: 20201117
  Transmission Date: 20210114
  Serious: Yes (Other)
  Sender: FDA-Public Use
  Company Number: CA-CELLTRION INC.-2020CA031330

PATIENT

DRUGS (30)
  1. AZITHROMYCIN ANHYDROUS. [Concomitant]
     Active Substance: AZITHROMYCIN ANHYDROUS
     Indication: ASTHMA
  2. ELAVIL [ALLOPURINOL] [Concomitant]
     Active Substance: ALLOPURINOL
  3. ESTRADOT [Concomitant]
     Active Substance: ESTRADIOL
  4. HYDROCORTISONE SODIUM SUCCINATE [Concomitant]
     Active Substance: HYDROCORTISONE SODIUM SUCCINATE
     Indication: PREMEDICATION
     Dosage: 100 MG
     Route: 042
  5. PULMICORT TURBUHALER [Concomitant]
     Active Substance: BUDESONIDE
     Indication: ASTHMA
     Route: 065
  6. RESTASIS [Concomitant]
     Active Substance: CYCLOSPORINE
  7. SODIUM CHLORIDE. [Concomitant]
     Active Substance: SODIUM CHLORIDE
     Route: 065
  8. URSODIOL. [Concomitant]
     Active Substance: URSODIOL
  9. MAGNESIUM CITRATE. [Concomitant]
     Active Substance: MAGNESIUM CITRATE
  10. ORACORT [TRIAMCINOLONE ACETONIDE] [Concomitant]
     Active Substance: TRIAMCINOLONE ACETONIDE
  11. RESTORALAX [Concomitant]
     Active Substance: POLYETHYLENE GLYCOL 3350
  12. SECARIS [Concomitant]
     Active Substance: PROPYLENE GLYCOL
     Route: 065
  13. ACETAMINOPHEN. [Concomitant]
     Active Substance: ACETAMINOPHEN
     Indication: PREMEDICATION
     Dosage: 1000 MG
     Route: 048
  14. FENTANYL TRANSDERMAL SYSTEM [Concomitant]
     Active Substance: FENTANYL
  15. PANTOPRAZOLE [Concomitant]
     Active Substance: PANTOPRAZOLE
  16. ROSUVASTATIN. [Concomitant]
     Active Substance: ROSUVASTATIN
     Indication: BLOOD CHOLESTEROL
  17. BENRALIZUMAB. [Concomitant]
     Active Substance: BENRALIZUMAB
  18. SYMBICORT [Concomitant]
     Active Substance: BUDESONIDE\FORMOTEROL FUMARATE DIHYDRATE
  19. TRAMADOL. [Concomitant]
     Active Substance: TRAMADOL
  20. DIPHENHYDRAMINE. [Concomitant]
     Active Substance: DIPHENHYDRAMINE
     Indication: PREMEDICATION
     Dosage: 50 MG
     Route: 048
  21. GLUCOSAMINE SULFATE [Concomitant]
     Active Substance: GLUCOSAMINE SULFATE
  22. APO-LEVOCARB [Concomitant]
     Active Substance: CARBIDOPA\LEVODOPA
  23. ZINC SULFATE. [Concomitant]
     Active Substance: ZINC SULFATE
  24. RITUXIMAB (UNKNOWN) [Suspect]
     Active Substance: RITUXIMAB
     Dosage: 1000 MG, 1 EVERY 15 DAYS
     Route: 042
  25. AERIUS [EBASTINE] [Concomitant]
     Active Substance: EBASTINE
  26. MONTELUKAST [Concomitant]
     Active Substance: MONTELUKAST SODIUM
     Indication: ASTHMA
  27. RITUXIMAB (UNKNOWN) [Suspect]
     Active Substance: RITUXIMAB
     Indication: RHEUMATOID ARTHRITIS
     Dosage: UNK
     Route: 042
  28. CELEBREX [Concomitant]
     Active Substance: CELECOXIB
  29. FIBRE, DIETARY [Concomitant]
     Active Substance: PSYLLIUM HUSK
  30. SPIRIVA [Concomitant]
     Active Substance: TIOTROPIUM BROMIDE MONOHYDRATE
     Indication: ASTHMA

REACTIONS (4)
  - Weight increased [Unknown]
  - Pneumonia [Unknown]
  - Sinusitis [Unknown]
  - Off label use [Unknown]
